FAERS Safety Report 21064720 (Version 1)
Quarter: 2022Q3

REPORT INFORMATION
  Report Type: Spontaneous
  Country: RO (occurrence: RO)
  Receive Date: 20220711
  Receipt Date: 20220711
  Transmission Date: 20221027
  Serious: Yes (Other)
  Sender: FDA-Public Use
  Company Number: RO-AMGEN-ROUSP2022108128

PATIENT
  Age: 68 Year
  Sex: Male

DRUGS (4)
  1. OXALIPLATIN [Suspect]
     Active Substance: OXALIPLATIN
     Indication: Colorectal cancer metastatic
     Dosage: UNK UNK, Q2W
     Route: 065
  2. VECTIBIX [Suspect]
     Active Substance: PANITUMUMAB
     Indication: Colorectal cancer metastatic
     Dosage: 6 MILLIGRAM/KILOGRAM, BIWEEKLY
     Route: 042
     Dates: start: 20220222
  3. FLUOROURACIL [Suspect]
     Active Substance: FLUOROURACIL
     Indication: Colorectal cancer metastatic
     Dosage: UNK UNK, Q2W
     Route: 042
     Dates: start: 20220222
  4. LEUCOVORIN [Suspect]
     Active Substance: LEUCOVORIN
     Indication: Colorectal cancer metastatic
     Dosage: UNK UNK, Q2W
     Route: 042
     Dates: start: 20220222

REACTIONS (10)
  - Colorectal cancer metastatic [Unknown]
  - Jaundice cholestatic [Unknown]
  - Hepatocellular injury [Unknown]
  - Multisystem inflammatory syndrome [Unknown]
  - Subdiaphragmatic abscess [Recovering/Resolving]
  - Cholangitis acute [Unknown]
  - Ascites [Recovering/Resolving]
  - Cholelithiasis [Unknown]
  - Abdominal pain [Unknown]
  - Rash [Unknown]

NARRATIVE: CASE EVENT DATE: 20220101
